FAERS Safety Report 7191538-5 (Version None)
Quarter: 2010Q4

REPORT INFORMATION
  Report Type: 
  Country: None (occurrence: None)
  Receive Date: 20101221
  Receipt Date: 20101221
  Transmission Date: 20110411
  Serious: Yes (Other)
  Sender: FDA-Public Use
  Company Number: None

PATIENT
  Sex: Male
  Weight: 68.0396 kg

DRUGS (2)
  1. ALDACTONE [Suspect]
     Indication: ADRENAL DISORDER
     Dosage: 25MG 1X DAY TAB
  2. ALDACTONE [Suspect]
     Indication: BLOOD POTASSIUM DECREASED
     Dosage: 25MG 1X DAY TAB

REACTIONS (1)
  - GYNAECOMASTIA [None]
